FAERS Safety Report 12430567 (Version 1)
Quarter: 2016Q2

REPORT INFORMATION
  Report Type: Spontaneous
  Country: US (occurrence: US)
  Receive Date: 20160602
  Receipt Date: 20160602
  Transmission Date: 20160815
  Serious: No
  Sender: FDA-Public Use
  Company Number: US-MDT-ADR-2016-00194

PATIENT
  Age: 20 Year
  Sex: Male

DRUGS (3)
  1. LIORESAL [Suspect]
     Active Substance: BACLOFEN
     Dosage: 115 MCG/DAY
     Dates: start: 20160126, end: 20160126
  2. LIORESAL [Suspect]
     Active Substance: BACLOFEN
     Dosage: 110 MCG/DAY
  3. LIORESAL [Suspect]
     Active Substance: BACLOFEN
     Dosage: 100 MCG/DAY
     Dates: start: 20160126

REACTIONS (2)
  - Incorrect dose administered [Recovered/Resolved]
  - Muscle spasticity [Recovered/Resolved]

NARRATIVE: CASE EVENT DATE: 20160126
